FAERS Safety Report 10056775 (Version 3)
Quarter: 2015Q4

REPORT INFORMATION
  Report Type: Report from Study
  Country: GB (occurrence: GB)
  Receive Date: 20140403
  Receipt Date: 20151215
  Transmission Date: 20160304
  Serious: Yes (Hospitalization)
  Sender: FDA-Public Use
  Company Number: PHHO2014GB003920

PATIENT
  Age: 69 Year
  Sex: Female
  Weight: 111 kg

DRUGS (7)
  1. RANIBIZUMAB [Suspect]
     Active Substance: RANIBIZUMAB
     Dosage: 0.5 MG/0.05ML (NON OCULAR)
     Route: 031
     Dates: start: 20131017, end: 20131017
  2. RANIBIZUMAB [Suspect]
     Active Substance: RANIBIZUMAB
     Dosage: 0.5 MG/0.05ML (NON OCULAR)
     Route: 031
     Dates: start: 20131220, end: 20131220
  3. RANIBIZUMAB [Suspect]
     Active Substance: RANIBIZUMAB
     Indication: NEOVASCULAR AGE-RELATED MACULAR DEGENERATION
     Dosage: 0.5 MG/0.05ML (NON OCULAR)
     Route: 031
     Dates: start: 20130919, end: 20130919
  4. CHLORAMPHENICAL [Suspect]
     Active Substance: CHLORAMPHENICOL
     Indication: PRODUCT USED FOR UNKNOWN INDICATION
     Dosage: 0.5 %, TID ON DAY TREATMENT+3 DAYS
     Route: 065
  5. RANIBIZUMAB [Suspect]
     Active Substance: RANIBIZUMAB
     Dosage: 0.5 MG/0.05ML (NON OCULAR)
     Route: 031
     Dates: start: 20140320, end: 20140320
  6. GLUCOPHAGE XR [Suspect]
     Active Substance: METFORMIN HYDROCHLORIDE
     Indication: PRODUCT USED FOR UNKNOWN INDICATION
     Dosage: 1 G, BID (NOCTE)
     Route: 065
     Dates: start: 20091009
  7. RANIBIZUMAB [Suspect]
     Active Substance: RANIBIZUMAB
     Dosage: 0.5 MG/0.05ML (NON OCULAR)
     Route: 031
     Dates: start: 20140116, end: 20140116

REACTIONS (7)
  - Fall [None]
  - Confusional state [None]
  - Gastroenteritis [Recovered/Resolved]
  - Head injury [None]
  - Clostridium difficile infection [None]
  - Contusion [None]
  - Escherichia test positive [None]

NARRATIVE: CASE EVENT DATE: 20140214
